FAERS Safety Report 18151516 (Version 4)
Quarter: 2021Q2

REPORT INFORMATION
  Report Type: Report from Study
  Country: US (occurrence: US)
  Receive Date: 20200814
  Receipt Date: 20210619
  Transmission Date: 20210717
  Serious: Yes (Hospitalization, Other)
  Sender: FDA-Public Use
  Company Number: US-SHIRE-US202026005

PATIENT
  Sex: Female
  Weight: 89 kg

DRUGS (32)
  1. ATENOLOL. [Concomitant]
     Active Substance: ATENOLOL
     Route: 065
  2. AMIODARONE [Concomitant]
     Active Substance: AMIODARONE
     Route: 065
  3. VITAMIN D3 [Concomitant]
     Active Substance: CHOLECALCIFEROL
     Route: 065
  4. METANX [Concomitant]
     Active Substance: LEVOMEFOLATE CALCIUM\METHYLCOBALAMIN\PYRIDOXAL PHOSPHATE ANHYDROUS
     Route: 065
  5. CUVITRU [Suspect]
     Active Substance: HUMAN IMMUNOGLOBULIN G
     Dosage: 16 GRAM, 1/WEEK
     Route: 058
     Dates: start: 20170726
  6. CARAFATE [Concomitant]
     Active Substance: SUCRALFATE
     Route: 065
  7. EPINEPHRINE. [Concomitant]
     Active Substance: EPINEPHRINE
     Route: 065
  8. LAMICTAL [Concomitant]
     Active Substance: LAMOTRIGINE
     Route: 065
  9. FUROSEMIDE. [Concomitant]
     Active Substance: FUROSEMIDE
     Route: 065
  10. CALCIUM [Concomitant]
     Active Substance: CALCIUM
     Route: 065
  11. PLAQUENIL [Concomitant]
     Active Substance: HYDROXYCHLOROQUINE SULFATE
     Route: 065
  12. CUVITRU [Suspect]
     Active Substance: HUMAN IMMUNOGLOBULIN G
     Indication: IMMUNODEFICIENCY COMMON VARIABLE
     Dosage: 14 GRAM, 1/WEEK
     Route: 058
     Dates: start: 20170726
  13. LIDOCAINE. [Concomitant]
     Active Substance: LIDOCAINE
     Route: 065
  14. ASPIRIN. [Concomitant]
     Active Substance: ASPIRIN
     Route: 065
  15. LEVOTHYROXINE. [Concomitant]
     Active Substance: LEVOTHYROXINE
     Route: 065
  16. PROVIGIL [Concomitant]
     Active Substance: MODAFINIL
     Route: 065
  17. PREDNISONE. [Concomitant]
     Active Substance: PREDNISONE
     Route: 065
  18. ATORVASTATIN [Concomitant]
     Active Substance: ATORVASTATIN
     Route: 065
  19. HYDROCODONE BITARTRATE AND ACETAMINOPHEN [Concomitant]
     Active Substance: ACETAMINOPHEN\HYDROCODONE BITARTRATE
     Route: 065
  20. ACETAMINOPHEN. [Concomitant]
     Active Substance: ACETAMINOPHEN
     Route: 065
  21. LEVAQUIN [Concomitant]
     Active Substance: LEVOFLOXACIN
     Route: 065
  22. COZAAR [Concomitant]
     Active Substance: LOSARTAN POTASSIUM
     Route: 065
  23. SINGULAIR [Concomitant]
     Active Substance: MONTELUKAST SODIUM
     Route: 065
  24. ALPRAZOLAM. [Concomitant]
     Active Substance: ALPRAZOLAM
     Route: 065
  25. AMITRIPTYLINE [Concomitant]
     Active Substance: AMITRIPTYLINE
     Route: 065
  26. PROTONIX [Concomitant]
     Active Substance: PANTOPRAZOLE SODIUM
     Route: 065
  27. ZOFRAN [Concomitant]
     Active Substance: ONDANSETRON HYDROCHLORIDE
     Route: 065
  28. SPIRONOLACTONE. [Concomitant]
     Active Substance: SPIRONOLACTONE
     Route: 065
  29. NAMENDA XR [Concomitant]
     Active Substance: MEMANTINE HYDROCHLORIDE
     Route: 065
  30. GABAPENTIN. [Concomitant]
     Active Substance: GABAPENTIN
     Route: 065
  31. DIPHENHYDRAMINE. [Concomitant]
     Active Substance: DIPHENHYDRAMINE
     Route: 065
  32. SYMBICORT [Concomitant]
     Active Substance: BUDESONIDE\FORMOTEROL FUMARATE DIHYDRATE
     Route: 065

REACTIONS (6)
  - Blood potassium decreased [Unknown]
  - Cardiac failure congestive [Unknown]
  - Pneumonia [Unknown]
  - Blood sodium decreased [Unknown]
  - Atrial fibrillation [Unknown]
  - Pleural effusion [Unknown]
